APPROVED DRUG PRODUCT: OCTREOTIDE ACETATE
Active Ingredient: OCTREOTIDE ACETATE
Strength: EQ 10MG BASE/VIAL
Dosage Form/Route: INJECTABLE;INJECTION
Application: A210317 | Product #001 | TE Code: AB
Applicant: TEVA PHARMACEUTICALS USA INC
Approved: Dec 5, 2023 | RLD: No | RS: No | Type: RX